FAERS Safety Report 8163934-0 (Version None)
Quarter: 2012Q1

REPORT INFORMATION
  Report Type: 
  Country: None (occurrence: None)
  Receive Date: 20120224
  Receipt Date: 20120215
  Transmission Date: 20120608
  Serious: Yes (Other)
  Sender: FDA-Public Use
  Company Number: PT-JNJFOC-20120208162

PATIENT
  Age: 53 Year
  Sex: Male
  Weight: 67 kg

DRUGS (3)
  1. ASPIRIN [Concomitant]
     Indication: ANTICOAGULANT THERAPY
     Route: 048
  2. INVEGA [Suspect]
     Indication: SCHIZOPHRENIA
     Route: 048
  3. INVEGA [Suspect]
     Route: 048
     Dates: start: 20111111

REACTIONS (1)
  - PLATELET COUNT INCREASED [None]
